FAERS Safety Report 19031321 (Version 1)
Quarter: 2021Q1

REPORT INFORMATION
  Report Type: Spontaneous
  Country: US (occurrence: US)
  Receive Date: 20210319
  Receipt Date: 20210319
  Transmission Date: 20210420
  Serious: Yes (Other)
  Sender: FDA-Public Use
  Company Number: None

PATIENT
  Age: 74 Year
  Sex: Female
  Weight: 68.95 kg

DRUGS (4)
  1. AMLODIPINE 2.5 MG [Concomitant]
     Active Substance: AMLODIPINE BESYLATE
  2. PRALUENT [Suspect]
     Active Substance: ALIROCUMAB
     Indication: TYPE IIA HYPERLIPIDAEMIA
     Dosage: ?          OTHER FREQUENCY:PEN 1/2 WKS;OTHER ROUTE:INJECTION?
     Dates: start: 20200910, end: 20201029
  3. TYLENOL [Concomitant]
     Active Substance: ACETAMINOPHEN
  4. REPATHA [Concomitant]
     Active Substance: EVOLOCUMAB

REACTIONS (3)
  - Pruritus [None]
  - Swelling face [None]
  - Anaphylactic shock [None]

NARRATIVE: CASE EVENT DATE: 20201029
